FAERS Safety Report 4647031-4 (Version None)
Quarter: 2005Q2

REPORT INFORMATION
  Report Type: 
  Country: None (occurrence: None)
  Receive Date: 20050331
  Receipt Date: 20050202
  Transmission Date: 20051028
  Serious: No
  Sender: FDA-Public Use
  Company Number: 05P-163-0289289

PATIENT
  Age: 65 Year
  Sex: Female
  Weight: 67.1324 kg

DRUGS (11)
  1. HUMIRA [Suspect]
     Indication: RHEUMATOID ARTHRITIS
     Dosage: 40 MG, 1 IN 2 WK, SUBCUTANEOUS
     Route: 058
     Dates: start: 20041015
  2. PREDNISONE [Concomitant]
  3. METOPROLOL SUCCINATE [Concomitant]
  4. HYDROXYCHLOROTHIAZIDE [Concomitant]
  5. SULFASALAZINE [Concomitant]
  6. AMLODIPINE BESYLATE [Concomitant]
  7. ALPRAZOLAM [Concomitant]
  8. HYDROCODONE BITARTRATE [Concomitant]
  9. GLIPIZIDE [Concomitant]
  10. CALCIUM GLUCONATE [Concomitant]
  11. POTASSIUM CHLORIDE [Concomitant]

REACTIONS (1)
  - THERMAL BURN [None]
